FAERS Safety Report 24087747 (Version 1)
Quarter: 2024Q3

REPORT INFORMATION
  Report Type: Spontaneous
  Country: US (occurrence: US)
  Receive Date: 20240715
  Receipt Date: 20240715
  Transmission Date: 20241017
  Serious: Yes (Hospitalization)
  Sender: STRIDES
  Company Number: US-STRIDES ARCOLAB LIMITED-2024SP008418

PATIENT
  Age: 1 Year
  Sex: Female

DRUGS (9)
  1. ETOPOSIDE [Suspect]
     Active Substance: ETOPOSIDE
     Indication: Neuroblastoma
     Dosage: UNK
     Route: 065
     Dates: start: 2006, end: 2008
  2. VINCRISTINE [Suspect]
     Active Substance: VINCRISTINE
     Indication: Neuroblastoma
     Dosage: UNK
     Route: 065
     Dates: start: 2006, end: 2008
  3. IRINOTECAN [Suspect]
     Active Substance: IRINOTECAN
     Indication: Neuroblastoma
     Dosage: UNK
     Route: 065
     Dates: start: 2006, end: 2008
  4. ACCUTANE [Suspect]
     Active Substance: ISOTRETINOIN
     Indication: Neuroblastoma
     Dosage: UNK
     Route: 065
     Dates: start: 2006, end: 2008
  5. DOXORUBICIN [Suspect]
     Active Substance: DOXORUBICIN
     Indication: Neuroblastoma
     Dosage: UNK
     Route: 065
     Dates: start: 2006, end: 2008
  6. CISPLATIN [Suspect]
     Active Substance: CISPLATIN
     Indication: Neuroblastoma
     Dosage: UNK
     Route: 065
     Dates: start: 2006, end: 2008
  7. CARBOPLATIN [Suspect]
     Active Substance: CARBOPLATIN
     Indication: Neuroblastoma
     Dosage: UNK
     Route: 065
     Dates: start: 2006, end: 2008
  8. MELPHALAN [Suspect]
     Active Substance: MELPHALAN
     Indication: Neuroblastoma
     Dosage: UNK
     Route: 065
     Dates: start: 2006, end: 2008
  9. CYCLOPHOSPHAMIDE [Suspect]
     Active Substance: CYCLOPHOSPHAMIDE
     Indication: Neuroblastoma
     Dosage: UNK
     Route: 065
     Dates: start: 2006, end: 2008

REACTIONS (2)
  - Pleuroparenchymal fibroelastosis [Recovered/Resolved]
  - Off label use [Unknown]

NARRATIVE: CASE EVENT DATE: 20060101
